FAERS Safety Report 4429879-4 (Version None)
Quarter: 2004Q3

REPORT INFORMATION
  Report Type: 
  Country: None (occurrence: None)
  Receive Date: 20040817
  Receipt Date: 20040802
  Transmission Date: 20050211
  Serious: Yes (Hospitalization, Other)
  Sender: FDA-Public Use
  Company Number: 203890

PATIENT
  Age: 32 Year
  Sex: Female
  Weight: 86.1 kg

DRUGS (1)
  1. HERCEPTIN [Suspect]
     Indication: BREAST CANCER
     Dosage: Q3W, INTRAVENOUS
     Route: 042
     Dates: start: 20020401, end: 20031114

REACTIONS (7)
  - ANAEMIA [None]
  - BREAST CANCER FEMALE [None]
  - CAESAREAN SECTION [None]
  - COMPLICATIONS OF MATERNAL EXPOSURE TO THERAPEUTIC DRUGS [None]
  - MALIGNANT NEOPLASM PROGRESSION [None]
  - OLIGOHYDRAMNIOS [None]
  - PREGNANCY [None]
